FAERS Safety Report 7016911-7 (Version None)
Quarter: 2010Q3

REPORT INFORMATION
  Report Type: 
  Country: None (occurrence: None)
  Receive Date: 20100927
  Receipt Date: 20100921
  Transmission Date: 20110219
  Serious: Yes (Hospitalization)
  Sender: FDA-Public Use
  Company Number: GB-AMGEN-KDC440066

PATIENT
  Sex: Male

DRUGS (9)
  1. VECTIBIX [Suspect]
     Indication: GASTROOESOPHAGEAL CANCER
     Dates: start: 20100813
  2. EPIRUBICIN [Suspect]
     Dates: start: 20100705
  3. OXALIPLATIN [Suspect]
     Dates: start: 20100708
  4. CAPECITABINE [Suspect]
     Dates: start: 20100708
  5. FLOMAX [Concomitant]
     Dates: start: 20080101
  6. TETRACYCLINE [Concomitant]
     Dates: start: 20100721, end: 20100731
  7. CLINDAMYCIN [Concomitant]
     Dates: start: 20100721, end: 20100731
  8. DIPROBASE [Concomitant]
     Dates: start: 20100721
  9. BETNOVATE [Concomitant]
     Dates: start: 20100723

REACTIONS (4)
  - DECREASED APPETITE [None]
  - DIARRHOEA [None]
  - NAUSEA [None]
  - VOMITING [None]
